FAERS Safety Report 10913393 (Version 1)
Quarter: 2015Q1

REPORT INFORMATION
  Report Type: Report from Study
  Country: US (occurrence: US)
  Receive Date: 20150313
  Receipt Date: 20150313
  Transmission Date: 20150721
  Serious: Yes (Death)
  Sender: FDA-Public Use
  Company Number: US-SA-2015SA030490

PATIENT
  Age: 80 Year
  Sex: Female

DRUGS (1)
  1. RENVELA [Suspect]
     Active Substance: SEVELAMER CARBONATE
     Indication: CHRONIC KIDNEY DISEASE
     Dosage: RENVELA 800 MG/ 2 TABLETS TID
     Route: 048
     Dates: end: 20150307

REACTIONS (1)
  - Death [Fatal]

NARRATIVE: CASE EVENT DATE: 20150307
